FAERS Safety Report 21508191 (Version 1)
Quarter: 2022Q4

REPORT INFORMATION
  Report Type: Report from Study
  Country: FR (occurrence: FR)
  Receive Date: 20221026
  Receipt Date: 20221026
  Transmission Date: 20230112
  Serious: Yes (Death)
  Sender: FDA-Public Use
  Company Number: FR-STADA-260081

PATIENT
  Age: 40 Year
  Sex: Female

DRUGS (11)
  1. DIAZEPAM [Suspect]
     Active Substance: DIAZEPAM
     Indication: Substance use
  2. NORDAZEPAM [Suspect]
     Active Substance: NORDAZEPAM
     Indication: Substance use
  3. TRAMADOL HYDROCHLORIDE [Suspect]
     Active Substance: TRAMADOL HYDROCHLORIDE
     Indication: Substance use
  4. OXOMEMAZINE [Suspect]
     Active Substance: OXOMEMAZINE
     Indication: Substance use
  5. PHOLCODINE [Suspect]
     Active Substance: PHOLCODINE
     Indication: Substance use
  6. LYRICA [Suspect]
     Active Substance: PREGABALIN
     Indication: Pain
  7. OXAZEPAM [Suspect]
     Active Substance: OXAZEPAM
     Indication: Substance use
  8. OMEPRAZOLE [Concomitant]
     Active Substance: OMEPRAZOLE
     Indication: Product used for unknown indication
  9. Insulin-detemir [Concomitant]
     Indication: Type 1 diabetes mellitus
  10. LORMETAZEPAM [Concomitant]
     Active Substance: LORMETAZEPAM
     Indication: Product used for unknown indication
  11. SITAGLIPTIN [Concomitant]
     Active Substance: SITAGLIPTIN
     Indication: Type 1 diabetes mellitus

REACTIONS (2)
  - Substance abuse [Fatal]
  - Toxicity to various agents [Fatal]
